FAERS Safety Report 8214045-7 (Version None)
Quarter: 2012Q1

REPORT INFORMATION
  Report Type: 
  Country: None (occurrence: None)
  Receive Date: 20120314
  Receipt Date: 20120314
  Transmission Date: 20120608
  Serious: Yes (Other)
  Sender: FDA-Public Use
  Company Number: None

PATIENT
  Sex: Male

DRUGS (2)
  1. ESCITALOPRAM [Suspect]
     Indication: ANXIETY
     Dosage: 20MG 1 WK WITH GENERIC
  2. ESCITALOPRAM [Suspect]
     Indication: DEPRESSION
     Dosage: 20MG 1 WK WITH GENERIC

REACTIONS (2)
  - PRODUCT SUBSTITUTION ISSUE [None]
  - DEPRESSION [None]
